FAERS Safety Report 8889038 (Version 2)
Quarter: 2012Q4

REPORT INFORMATION
  Report Type: 
  Country: JP (occurrence: JP)
  Receive Date: 20121106
  Receipt Date: 20121108
  Transmission Date: 20130627
  Serious: Yes (Hospitalization)
  Sender: FDA-Public Use
  Company Number: JP-AMGEN-JPNCT2012070176

PATIENT
  Age: 65 Year
  Sex: Male
  Weight: 54.8 kg

DRUGS (29)
  1. MOGAMULIZUMAB [Suspect]
     Indication: ADULT T-CELL LYMPHOMA/LEUKAEMIA
     Dosage: UNK
     Dates: start: 20110131
  2. GRAN [Suspect]
     Indication: FEBRILE NEUTROPENIA
     Dosage: UNK
     Route: 065
     Dates: start: 20110209, end: 20110711
  3. GRAN [Suspect]
     Indication: NEUTROPHIL COUNT DECREASED
     Dosage: UNK
     Route: 065
     Dates: start: 20110221, end: 20110228
  4. GRAN [Suspect]
     Dosage: UNK
     Route: 065
     Dates: start: 20110311, end: 20110314
  5. GRAN [Suspect]
     Dosage: UNK
     Route: 065
     Dates: start: 20110318, end: 20110321
  6. GRAN [Suspect]
     Dosage: UNK
     Route: 065
     Dates: start: 20110327, end: 20110404
  7. GRAN [Suspect]
     Dosage: UNK
     Route: 065
     Dates: start: 20110408, end: 20110417
  8. GRAN [Suspect]
     Dosage: UNK
     Route: 065
     Dates: start: 20110421, end: 20110424
  9. GRAN [Suspect]
     Dosage: UNK
     Route: 065
     Dates: start: 20110430, end: 20110509
  10. GRAN [Suspect]
     Dosage: UNK
     Route: 065
     Dates: start: 20110526, end: 20110529
  11. GRAN [Suspect]
     Dosage: UNK
     Route: 065
     Dates: start: 20110602, end: 20110607
  12. GRAN [Suspect]
     Dosage: UNK
     Route: 065
     Dates: start: 20110613, end: 20110621
  13. ADRIACIN [Concomitant]
     Indication: ADULT T-CELL LYMPHOMA/LEUKAEMIA
     Dosage: UNK UNK, q4wk
     Route: 042
     Dates: start: 20110131
  14. ONCOVIN [Concomitant]
     Indication: ADULT T-CELL LYMPHOMA/LEUKAEMIA
     Dosage: 1 mg/m2, q4wk
     Route: 041
     Dates: start: 20110131, end: 20110702
  15. ENDOXAN [Concomitant]
     Indication: ADULT T-CELL LYMPHOMA/LEUKAEMIA
     Dosage: 350 mg/m2, q4wk
     Route: 041
     Dates: start: 20110131, end: 20110702
  16. PREDONINE [Concomitant]
     Indication: ADULT T-CELL LYMPHOMA/LEUKAEMIA
     Dosage: 40 mg/m2, q4wk
     Route: 048
     Dates: start: 20110131
  17. PREDNISOLONE SODIUM PHOSPHATE [Concomitant]
     Indication: ADULT T-CELL LYMPHOMA/LEUKAEMIA
     Dosage: 10 mg, q8wk
     Route: 037
     Dates: start: 20110308
  18. CYMERIN [Concomitant]
     Indication: ADULT T-CELL LYMPHOMA/LEUKAEMIA
     Dosage: 60 mg/m2, q4wk
     Route: 041
     Dates: start: 20110131
  19. FILDESIN [Concomitant]
     Indication: ADULT T-CELL LYMPHOMA/LEUKAEMIA
     Dosage: 2.4 mg/m2, q4wk
     Route: 041
     Dates: start: 20110731, end: 20110716
  20. ETOPOSIDE [Concomitant]
     Indication: ADULT T-CELL LYMPHOMA/LEUKAEMIA
     Dosage: 100 mg/m2, q4wk
     Route: 041
     Dates: start: 20110131
  21. CARBOPLATIN [Concomitant]
     Indication: ADULT T-CELL LYMPHOMA/LEUKAEMIA
     Dosage: 250 mg/m2, q4wk
     Route: 041
     Dates: start: 20110131
  22. CYTARABINE [Concomitant]
     Indication: ADULT T-CELL LYMPHOMA/LEUKAEMIA
     Dosage: 40 mg, q8wk
     Route: 028
     Dates: start: 20110308
  23. METHOTREXATE [Concomitant]
     Indication: ADULT T-CELL LYMPHOMA/LEUKAEMIA
     Dosage: 15 mg, q8wk
     Route: 028
     Dates: start: 20110308
  24. LOXONIN [Concomitant]
     Indication: BACK PAIN
     Dosage: Single use
     Route: 048
  25. MOHRUS L [Concomitant]
     Indication: BACK PAIN
     Dosage: Single use
     Route: 061
  26. PROTECADIN [Concomitant]
     Indication: GASTRIC MUCOSAL LESION
     Dosage: 10 mg, bid
     Route: 048
  27. ISCOTIN [Concomitant]
     Indication: ANTIBIOTIC PROPHYLAXIS
     Dosage: 300 mg, qd
     Route: 048
     Dates: start: 20110131
  28. BAKTAR [Concomitant]
     Indication: PNEUMOCYSTIS JIROVECI PNEUMONIA
     Dosage: 1 g, qd
     Route: 048
     Dates: start: 20110131
  29. RIBALL [Concomitant]
     Indication: TUMOUR LYSIS SYNDROME
     Route: 048
     Dates: start: 20110131, end: 20111001

REACTIONS (32)
  - Myelodysplastic syndrome [Not Recovered/Not Resolved]
  - Thrombocytopenia [Recovering/Resolving]
  - Leukopenia [Recovering/Resolving]
  - Neutropenia [Recovering/Resolving]
  - Febrile neutropenia [Recovered/Resolved]
  - Lymphopenia [Recovering/Resolving]
  - Blood albumin decreased [Recovered/Resolved]
  - Hepatic enzyme increased [Not Recovered/Not Resolved]
  - Pyrexia [Recovered/Resolved]
  - Weight decreased [Recovered/Resolved]
  - Flushing [Not Recovered/Not Resolved]
  - Back pain [Recovered/Resolved]
  - Abdominal pain lower [Recovered/Resolved]
  - Nasopharyngitis [Recovered/Resolved]
  - Erythema [Recovered/Resolved]
  - Alopecia [Not Recovered/Not Resolved]
  - Malaise [Recovered/Resolved]
  - Constipation [Recovered/Resolved]
  - Diarrhoea [Recovered/Resolved]
  - Nausea [Recovered/Resolved]
  - Vomiting [Recovered/Resolved]
  - Hiccups [Recovered/Resolved]
  - Decreased appetite [Recovered/Resolved]
  - Vessel puncture site reaction [Recovered/Resolved]
  - Gastrooesophageal reflux disease [Recovered/Resolved]
  - Stomatitis [Recovered/Resolved]
  - Eczema herpeticum [Recovered/Resolved]
  - Hypoaesthesia [Recovered/Resolved]
  - Vessel puncture site pain [Recovered/Resolved]
  - Headache [Recovered/Resolved]
  - Headache [Recovered/Resolved]
  - Anaemia [Not Recovered/Not Resolved]
